FAERS Safety Report 18654944 (Version 2)
Quarter: 2021Q2

REPORT INFORMATION
  Report Type: Spontaneous
  Country: US (occurrence: US)
  Receive Date: 20201223
  Receipt Date: 20210615
  Transmission Date: 20210717
  Serious: Yes (Other)
  Sender: FDA-Public Use
  Company Number: US-GILEAD-2020-0509299

PATIENT
  Age: 62 Year
  Sex: Male
  Weight: 136.07 kg

DRUGS (16)
  1. ATRIPLA [Suspect]
     Active Substance: EFAVIRENZ\EMTRICITABINE\TENOFOVIR DISOPROXIL FUMARATE
     Indication: HIV INFECTION
     Dosage: UNK
     Route: 048
     Dates: start: 2002
  2. ATRIPLA [Suspect]
     Active Substance: EFAVIRENZ\EMTRICITABINE\TENOFOVIR DISOPROXIL FUMARATE
     Dosage: UNK
     Route: 065
     Dates: start: 2006, end: 2012
  3. ASPIRIN [ACETYLSALICYLIC ACID] [Concomitant]
     Active Substance: ASPIRIN
  4. TRUVADA [Suspect]
     Active Substance: EMTRICITABINE\TENOFOVIR DISOPROXIL FUMARATE
     Dosage: UNK
     Route: 065
     Dates: start: 2012, end: 2016
  5. ISENTRESS [Concomitant]
     Active Substance: RALTEGRAVIR POTASSIUM
  6. CANDESARTAN. [Concomitant]
     Active Substance: CANDESARTAN
  7. TRUVADA [Suspect]
     Active Substance: EMTRICITABINE\TENOFOVIR DISOPROXIL FUMARATE
     Indication: HIV INFECTION
     Dosage: UNK
     Route: 048
     Dates: start: 2002
  8. PRILOSEC [Concomitant]
     Active Substance: OMEPRAZOLE MAGNESIUM
  9. DESCOVY [Concomitant]
     Active Substance: EMTRICITABINE\TENOFOVIR ALAFENAMIDE FUMARATE
  10. HYDROCHLOROTHIAZIDE. [Concomitant]
     Active Substance: HYDROCHLOROTHIAZIDE
  11. VIREAD [Suspect]
     Active Substance: TENOFOVIR DISOPROXIL FUMARATE
     Dosage: UNK
     Route: 065
     Dates: start: 200112, end: 2006
  12. ROSUVASTATIN. [Concomitant]
     Active Substance: ROSUVASTATIN
  13. VIREAD [Suspect]
     Active Substance: TENOFOVIR DISOPROXIL FUMARATE
     Indication: HIV INFECTION
     Dosage: UNK
     Route: 048
     Dates: start: 2002
  14. AMITRIPTYLINE [Concomitant]
     Active Substance: AMITRIPTYLINE
  15. GABAPENTIN. [Concomitant]
     Active Substance: GABAPENTIN
  16. DULOXETINE. [Concomitant]
     Active Substance: DULOXETINE

REACTIONS (9)
  - Glomerular filtration rate abnormal [Unknown]
  - Emotional distress [Unknown]
  - Blood creatinine increased [Unknown]
  - Osteopenia [Not Recovered/Not Resolved]
  - Chronic kidney disease [Not Recovered/Not Resolved]
  - Anxiety [Unknown]
  - Pain [Unknown]
  - Anhedonia [Unknown]
  - Bone density decreased [Not Recovered/Not Resolved]

NARRATIVE: CASE EVENT DATE: 2018
